FAERS Safety Report 4597075-6 (Version None)
Quarter: 2005Q1

REPORT INFORMATION
  Report Type: 
  Country: None (occurrence: None)
  Receive Date: 20050302
  Receipt Date: 20050209
  Transmission Date: 20050727
  Serious: Yes (Hospitalization)
  Sender: FDA-Public Use
  Company Number: JP-MERCK-0502USA01579

PATIENT
  Age: 21 Year
  Sex: Female

DRUGS (4)
  1. DECADRON [Suspect]
     Indication: ASTHMA
     Route: 065
     Dates: start: 20041001, end: 20041101
  2. DECADRON [Suspect]
     Route: 065
     Dates: start: 20041101
  3. THEOPHYLLINE [Suspect]
     Indication: ASTHMA
     Route: 065
     Dates: start: 20041001
  4. THEOPHYLLINE [Suspect]
     Route: 065

REACTIONS (2)
  - MYOPATHY STEROID [None]
  - RHABDOMYOLYSIS [None]
